FAERS Safety Report 23631783 (Version 3)
Quarter: 2024Q4

REPORT INFORMATION
  Report Type: Report from Study
  Country: US (occurrence: US)
  Receive Date: 20240314
  Receipt Date: 20241206
  Transmission Date: 20250115
  Serious: Yes (Death)
  Sender: TEVA
  Company Number: US-TEVA-VS-3169580

PATIENT

DRUGS (2)
  1. IMATINIB [Suspect]
     Active Substance: IMATINIB
     Indication: Philadelphia positive acute lymphocytic leukaemia
     Dosage: MAINTENANCE THERAPY
     Route: 065
  2. IMATINIB [Suspect]
     Active Substance: IMATINIB
     Indication: Philadelphia positive acute lymphocytic leukaemia
     Route: 065

REACTIONS (1)
  - Drug ineffective [Fatal]
